FAERS Safety Report 6312561-6 (Version None)
Quarter: 2009Q3

REPORT INFORMATION
  Report Type: 
  Country: None (occurrence: None)
  Receive Date: 20090817
  Receipt Date: 20090716
  Transmission Date: 20100115
  Serious: No
  Sender: FDA-Public Use
  Company Number: US-ALLERGAN-0909969US

PATIENT
  Sex: Male

DRUGS (3)
  1. SANCTURA XR [Suspect]
     Indication: MICTURITION URGENCY
     Dosage: 60 MG, QHS
     Route: 048
     Dates: start: 20090712
  2. PRAVACHOL [Concomitant]
     Indication: HYPERCHOLESTEROLAEMIA
  3. CITALOPRAM HYDROBROMIDE [Concomitant]
     Indication: DEPRESSION

REACTIONS (1)
  - ABDOMINAL PAIN [None]
